FAERS Safety Report 10412529 (Version 1)
Quarter: 2014Q3

REPORT INFORMATION
  Report Type: Spontaneous
  Country: US (occurrence: None)
  Receive Date: 20140826
  Receipt Date: 20140826
  Transmission Date: 20150326
  Serious: Yes (Disabling, Other)
  Sender: FDA-Public Use
  Company Number: None

PATIENT
  Age: 33 Year
  Sex: Female
  Weight: 65.77 kg

DRUGS (1)
  1. CLARAVIS [Suspect]
     Active Substance: ISOTRETINOIN
     Indication: ACNE
     Dosage: 2 PILLS, ONCE DAILY, TAKEN BY MOUTH
     Route: 048
     Dates: start: 20140501, end: 20140723

REACTIONS (10)
  - Disturbance in attention [None]
  - Mood altered [None]
  - Personality change [None]
  - Emotional disorder [None]
  - Suicidal ideation [None]
  - Depression [None]
  - Aggression [None]
  - Irritability [None]
  - Abnormal behaviour [None]
  - Feelings of worthlessness [None]

NARRATIVE: CASE EVENT DATE: 20140723
